FAERS Safety Report 9436574 (Version 1)
Quarter: 2013Q3

REPORT INFORMATION
  Report Type: Spontaneous
  Country: US (occurrence: US)
  Receive Date: 20130802
  Receipt Date: 20130802
  Transmission Date: 20140515
  Serious: No
  Sender: FDA-Public Use
  Company Number: US-OPTIMER-20130199

PATIENT
  Age: 66 Year
  Sex: Female

DRUGS (3)
  1. FIDAXOMICIN [Suspect]
     Indication: CLOSTRIDIUM DIFFICILE COLITIS
     Dosage: UNK
     Dates: start: 20130111, end: 20130121
  2. PIP/TAZO [Concomitant]
     Dosage: UNK
     Dates: start: 20130108, end: 20130117
  3. LINEZOLID [Concomitant]
     Dosage: UNK
     Dates: start: 20130108, end: 20130117

REACTIONS (1)
  - Off label use [Unknown]
